FAERS Safety Report 7938301-2 (Version None)
Quarter: 2011Q4

REPORT INFORMATION
  Report Type: 
  Country: None (occurrence: None)
  Receive Date: 20111123
  Receipt Date: 20111122
  Transmission Date: 20120403
  Serious: Yes (Hospitalization, Other)
  Sender: FDA-Public Use
  Company Number: US-BAYER-2011-112918

PATIENT
  Age: 57 Year
  Sex: Female

DRUGS (2)
  1. INTERFERON BETA-1B [Suspect]
     Indication: MULTIPLE SCLEROSIS
     Dosage: UNK
     Route: 058
     Dates: start: 20090112, end: 20100401
  2. INTERFERON BETA-1B [Suspect]
     Dosage: 8 MIU, QOD
     Route: 058
     Dates: start: 20110601, end: 20111102

REACTIONS (8)
  - COLON DYSPLASIA [None]
  - DIARRHOEA [None]
  - NAUSEA [None]
  - PANCREATIC DISORDER [None]
  - ABDOMINAL PAIN [None]
  - PAIN [None]
  - VOMITING [None]
  - HERPES ZOSTER [None]
